FAERS Safety Report 8264154-1 (Version None)
Quarter: 2012Q2

REPORT INFORMATION
  Report Type: 
  Country: None (occurrence: None)
  Receive Date: 20120406
  Receipt Date: 20120324
  Transmission Date: 20120825
  Serious: Yes (Death, Hospitalization, Other)
  Sender: FDA-Public Use
  Company Number: AT-PAR PHARMACEUTICAL, INC-2012SCPR004298

PATIENT

DRUGS (3)
  1. PHENPROCOUMON [Concomitant]
     Indication: ISCHAEMIC STROKE
     Dosage: UNK, UNKNOWN
     Route: 048
  2. PHENPROCOUMON [Concomitant]
     Indication: PERIPHERAL EMBOLISM
  3. DEXAMETHASONE [Suspect]
     Indication: LYMPHOMA
     Dosage: 32 MG, / DAY
     Route: 065

REACTIONS (12)
  - ERYSIPELAS [None]
  - HAEMATOMA [None]
  - ANTIBIOTIC RESISTANT STAPHYLOCOCCUS TEST POSITIVE [None]
  - ENDOCARDITIS [None]
  - IMMUNOSUPPRESSION [None]
  - SEPSIS [None]
  - EXCORIATION [None]
  - PSEUDOMONAS INFECTION [None]
  - DEATH [None]
  - CARDIAC VALVE VEGETATION [None]
  - FALL [None]
  - MULTI-ORGAN FAILURE [None]
